FAERS Safety Report 10095577 (Version 1)
Quarter: 2014Q2

REPORT INFORMATION
  Report Type: Spontaneous
  Country: FR (occurrence: FR)
  Receive Date: 20140422
  Receipt Date: 20140422
  Transmission Date: 20141212
  Serious: Yes (Hospitalization)
  Sender: FDA-Public Use
  Company Number: FR-ASTRAZENECA-2014SE26168

PATIENT
  Age: 84 Year
  Sex: Male

DRUGS (5)
  1. CASODEX [Suspect]
     Route: 048
     Dates: end: 20140203
  2. DISTILBENE [Suspect]
     Route: 048
     Dates: end: 20140203
  3. TEREBENTHINE OIL [Suspect]
     Dosage: THREE INHALATIONS OF 30 MINUTES PER DAY
     Route: 055
     Dates: start: 201312, end: 201312
  4. DECAPEPTYL [Suspect]
     Dosage: ONE DF EVERY 6 MONTHS
     Route: 065
     Dates: end: 201311
  5. OXYGEN [Concomitant]
     Dosage: 1L/MINUTE AT REST AND AT 3 L/MIN AT EFFORT
     Dates: start: 201310

REACTIONS (2)
  - Condition aggravated [Recovered/Resolved]
  - Pulmonary fibrosis [Recovered/Resolved]
